FAERS Safety Report 25464581 (Version 1)
Quarter: 2025Q2

REPORT INFORMATION
  Report Type: Spontaneous
  Country: US (occurrence: US)
  Receive Date: 20250621
  Receipt Date: 20250621
  Transmission Date: 20250717
  Serious: No
  Sender: SANOFI AVENTIS
  Company Number: US-SA-2025SA175673

PATIENT
  Sex: Female

DRUGS (7)
  1. DUPIXENT [Suspect]
     Active Substance: DUPILUMAB
     Indication: Dermatitis atopic
     Dosage: 300 MG, QOW
     Route: 058
     Dates: start: 20241207
  2. BENZONATATE [Concomitant]
     Active Substance: BENZONATATE
  3. COUGH DM [Concomitant]
     Active Substance: DEXTROMETHORPHAN HYDROBROMIDE
  4. VITAMINS [Concomitant]
     Active Substance: VITAMINS
  5. OREGANO LEAF OIL [Concomitant]
     Active Substance: OREGANO LEAF OIL
  6. VITAMIN D NOS [Concomitant]
     Active Substance: CHOLECALCIFEROL\ERGOCALCIFEROL
  7. ZINC [Concomitant]
     Active Substance: ZINC

REACTIONS (4)
  - Rash [Unknown]
  - Eye irritation [Unknown]
  - Rash macular [Not Recovered/Not Resolved]
  - Therapeutic response decreased [Not Recovered/Not Resolved]
